FAERS Safety Report 14662635 (Version 1)
Quarter: 2018Q1

REPORT INFORMATION
  Report Type: Spontaneous
  Country: US (occurrence: US)
  Receive Date: 20180321
  Receipt Date: 20180321
  Transmission Date: 20180509
  Serious: No
  Sender: FDA-Public Use
  Company Number: US-ASTRAZENECA-2018SE35059

PATIENT
  Age: 72 Year
  Sex: Female

DRUGS (3)
  1. GEMZAR [Concomitant]
     Active Substance: GEMCITABINE HYDROCHLORIDE
     Dates: start: 20171227
  2. LYNPARZA [Suspect]
     Active Substance: OLAPARIB
     Indication: PROPHYLAXIS
     Route: 048
     Dates: start: 20180129
  3. CARBOPLATINUM [Concomitant]
     Active Substance: CARBOPLATIN
     Dates: start: 20171227

REACTIONS (3)
  - Platelet count decreased [Unknown]
  - Product use issue [Unknown]
  - Off label use [Unknown]

NARRATIVE: CASE EVENT DATE: 20180129
